FAERS Safety Report 13865347 (Version 1)
Quarter: 2017Q3

REPORT INFORMATION
  Report Type: Spontaneous
  Country: GB (occurrence: GB)
  Receive Date: 20170814
  Receipt Date: 20170814
  Transmission Date: 20171127
  Serious: Yes (Hospitalization)
  Sender: FDA-Public Use
  Company Number: GB-SA-2017SA143642

PATIENT
  Age: 48 Year
  Sex: Male
  Weight: 59.5 kg

DRUGS (13)
  1. ACICLOVIR [Concomitant]
     Active Substance: ACYCLOVIR
  2. LACTULOSE. [Concomitant]
     Active Substance: LACTULOSE
     Dosage: FORM SOLUTION
     Route: 065
  3. CLEXANE [Suspect]
     Active Substance: ENOXAPARIN SODIUM
     Indication: DEEP VEIN THROMBOSIS
     Dosage: DOSE WAS SPLIT THEN CHANGED BACK TO ONCE A DAY.
     Route: 058
     Dates: start: 20170223, end: 20170726
  4. OMEPRAZOLE. [Concomitant]
     Active Substance: OMEPRAZOLE
  5. CODEINE [Concomitant]
     Active Substance: CODEINE
  6. BENZYDAMINE HYDROCHLORIDE [Concomitant]
     Active Substance: BENZYDAMINE HYDROCHLORIDE
  7. ONDANSETRON [Concomitant]
     Active Substance: ONDANSETRON
  8. PEPPERMINT OIL [Concomitant]
     Active Substance: PEPPERMINT OIL
  9. FLUDROCORTISONE [Concomitant]
     Active Substance: FLUDROCORTISONE
  10. FOLIC ACID. [Concomitant]
     Active Substance: FOLIC ACID
  11. PARACETAMOL [Concomitant]
     Active Substance: ACETAMINOPHEN
  12. COTRIMOXAZOLE [Concomitant]
     Active Substance: SULFAMETHOXAZOLE\TRIMETHOPRIM
  13. MACROGOL [Concomitant]
     Active Substance: POLYETHYLENE GLYCOLS

REACTIONS (2)
  - Neutropenic sepsis [Unknown]
  - Deep vein thrombosis [Recovering/Resolving]

NARRATIVE: CASE EVENT DATE: 20170727
